FAERS Safety Report 8592470-2 (Version None)
Quarter: 2012Q3

REPORT INFORMATION
  Report Type: 
  Country: None (occurrence: None)
  Receive Date: 20120814
  Receipt Date: 20120808
  Transmission Date: 20120928
  Serious: Yes (Death, Hospitalization)
  Sender: FDA-Public Use
  Company Number: US-009507513-1208USA004183

PATIENT

DRUGS (1)
  1. INVANZ [Suspect]
     Indication: URINARY TRACT INFECTION
     Route: 041

REACTIONS (1)
  - CLOSTRIDIUM DIFFICILE SEPSIS [None]
